FAERS Safety Report 5661983-5 (Version None)
Quarter: 2008Q2

REPORT INFORMATION
  Report Type: 
  Country: None (occurrence: None)
  Receive Date: 20080201
  Receipt Date: 20070620
  Transmission Date: 20081010
  Serious: Yes (Other)
  Sender: FDA-Public Use
  Company Number: 503705

PATIENT
  Sex: Female

DRUGS (2)
  1. COPEGUS [Suspect]
     Indication: HEPATITIS C
     Dates: start: 20060115, end: 20060615
  2. INTERFERON ALFA (INTERFERON ALFA) [Suspect]
     Indication: HEPATITIS C
     Dosage: 1 PER WEEK
     Dates: start: 20060115, end: 20060615

REACTIONS (5)
  - ARTHRALGIA [None]
  - OCULAR ICTERUS [None]
  - PYREXIA [None]
  - VOMITING [None]
  - WEIGHT DECREASED [None]
